FAERS Safety Report 6132730-8 (Version None)
Quarter: 2009Q1

REPORT INFORMATION
  Report Type: 
  Country: None (occurrence: None)
  Receive Date: 20090325
  Receipt Date: 20090325
  Transmission Date: 20090719
  Serious: Yes (Other)
  Sender: FDA-Public Use
  Company Number: None

PATIENT
  Age: 60 Year
  Sex: Male

DRUGS (1)
  1. LEVETIRACETAM [Suspect]
     Indication: COMPLEX PARTIAL SEIZURES
     Dosage: 1000 MG 2X A DAY ORAL 750 MG 2X A DAY ORAL
     Route: 048
     Dates: start: 20090202, end: 20090209

REACTIONS (5)
  - AURA [None]
  - CONDITION AGGRAVATED [None]
  - MYOCLONUS [None]
  - PRODUCT QUALITY ISSUE [None]
  - STARING [None]
